FAERS Safety Report 4331121-X (Version None)
Quarter: 2004Q1

REPORT INFORMATION
  Report Type: 
  Country: None (occurrence: None)
  Receive Date: 20040331
  Receipt Date: 20040318
  Transmission Date: 20041129
  Serious: Yes (Other)
  Sender: FDA-Public Use
  Company Number: 2004019193

PATIENT
  Age: 59 Year
  Sex: Female
  Weight: 63.5036 kg

DRUGS (3)
  1. ZYRTEC-D 12 HOUR [Suspect]
     Indication: SINUS DISORDER
     Dosage: (BID), ORAL
     Route: 048
     Dates: start: 20040307, end: 20040309
  2. ALL OTHER THERAPEUTIC PRODUCTS [Concomitant]
  3. CHOLESTEROL- AND TRIGLYCERIDE REDUCERS [Concomitant]

REACTIONS (2)
  - APHASIA [None]
  - DYSPNOEA [None]
